FAERS Safety Report 10211232 (Version 1)
Quarter: 2014Q2

REPORT INFORMATION
  Report Type: Spontaneous
  Country: GB (occurrence: GB)
  Receive Date: 20140602
  Receipt Date: 20140602
  Transmission Date: 20141212
  Serious: Yes (Hospitalization)
  Sender: FDA-Public Use
  Company Number: GB-WATSON-2014-11471

PATIENT
  Age: 75 Year
  Sex: Female

DRUGS (10)
  1. NAPROXEN (UNKNOWN) [Suspect]
     Indication: JOINT SWELLING
     Dosage: 500 MG, BID
     Route: 048
     Dates: start: 20140430, end: 20140507
  2. NAPROXEN (UNKNOWN) [Suspect]
     Indication: ARTHRALGIA
  3. WARFARIN (UNKNOWN) [Suspect]
     Indication: ATRIAL FIBRILLATION
     Dosage: RECENT DOSAGE 2MG MONDAY, 1MG OTHER DAYS; AS NECESSARY
     Route: 048
  4. WARFARIN (UNKNOWN) [Suspect]
     Indication: DEEP VEIN THROMBOSIS
  5. CO-CODAMOL [Concomitant]
     Indication: PRODUCT USED FOR UNKNOWN INDICATION
     Dosage: 2 DF, QID; 30MG/500MG, 1-2 TABLETS FOUR TIMES A DAY AS REQUIRED
     Route: 048
  6. AMLODIPINE [Concomitant]
     Indication: PRODUCT USED FOR UNKNOWN INDICATION
     Dosage: 5 MG, DAILY
     Route: 048
  7. BISOPROLOL [Concomitant]
     Indication: PRODUCT USED FOR UNKNOWN INDICATION
     Dosage: 2.5 MG, DAILY
     Route: 050
  8. LEVOTHYROXINE [Concomitant]
     Indication: PRODUCT USED FOR UNKNOWN INDICATION
     Dosage: 100 ?G, DAILY
     Route: 048
  9. OMEPRAZOLE [Concomitant]
     Indication: PRODUCT USED FOR UNKNOWN INDICATION
     Dosage: 20 MG, DAILY; FOR 1 WEEK WHILST TAKING NAPROXEN ONLY
     Route: 048
     Dates: start: 20140430, end: 20140507
  10. SIMVASTATIN [Concomitant]
     Indication: PRODUCT USED FOR UNKNOWN INDICATION
     Dosage: 20 MG, DAILY
     Route: 048

REACTIONS (1)
  - Epistaxis [Recovered/Resolved]
